FAERS Safety Report 18344710 (Version 1)
Quarter: 2020Q4

REPORT INFORMATION
  Report Type: Spontaneous
  Country: IT (occurrence: IT)
  Receive Date: 20201005
  Receipt Date: 20201005
  Transmission Date: 20210114
  Serious: Yes (Hospitalization)
  Sender: FDA-Public Use
  Company Number: IT-TEVA-2020-IT-1835051

PATIENT
  Age: 79 Year
  Sex: Female

DRUGS (3)
  1. TRITTICO 50 MG COMPRESSE RIVESTITE CON FILM [Concomitant]
     Active Substance: TRAZODONE HYDROCHLORIDE
  2. TICLOPIDINA [Suspect]
     Active Substance: TICLOPIDINE
     Indication: PLATELET AGGREGATION INHIBITION
     Dosage: UNIT DOSE : 250 MG
     Route: 048
     Dates: start: 20150101, end: 20200913
  3. METFORAL 500 MG COMPRESSE RIVESTITE CON FILM [Concomitant]
     Active Substance: METFORMIN HYDROCHLORIDE

REACTIONS (1)
  - Subdural haematoma [Recovering/Resolving]

NARRATIVE: CASE EVENT DATE: 20200913
